FAERS Safety Report 21098837 (Version 3)
Quarter: 2022Q3

REPORT INFORMATION
  Report Type: Report from Study
  Country: DE (occurrence: None)
  Receive Date: 20220719
  Receipt Date: 20220928
  Transmission Date: 20221026
  Serious: Yes (Life-Threatening, Hospitalization)
  Sender: FDA-Public Use
  Company Number: DE-Merck Healthcare KGaA-9336652

PATIENT
  Sex: Female

DRUGS (2)
  1. REBIF [Suspect]
     Active Substance: INTERFERON BETA-1A
     Indication: Multiple sclerosis
     Dosage: STOPPED APPROXIMATELY IN MAR 2020
     Route: 058
     Dates: start: 2007
  2. REBIF [Suspect]
     Active Substance: INTERFERON BETA-1A
     Dosage: ONE-YEAR REBIF BREAK AND STARTED WITH REBIF THERAPY STARTER PACK APPROXIMATELY IN SEP 2021
     Route: 058

REACTIONS (7)
  - Pneumothorax [Recovering/Resolving]
  - Pneumonia [Recovering/Resolving]
  - Renal impairment [Recovering/Resolving]
  - Pericardial haemorrhage [Unknown]
  - Post procedural complication [Unknown]
  - Arteriosclerosis coronary artery [Recovering/Resolving]
  - Medical induction of coma [Recovering/Resolving]
